FAERS Safety Report 4798890-6 (Version None)
Quarter: 2005Q4

REPORT INFORMATION
  Report Type: 
  Country: None (occurrence: None)
  Receive Date: 20051014
  Receipt Date: 20050927
  Transmission Date: 20060501
  Serious: Yes (Other)
  Sender: FDA-Public Use
  Company Number: 2005SE05447

PATIENT
  Age: 765 Month
  Sex: Female

DRUGS (5)
  1. BLOPRESS TABLETS 8 [Suspect]
     Indication: HYPERTENSION
     Route: 048
     Dates: start: 20030801
  2. KALLIKREIN [Concomitant]
     Route: 048
  3. CEROCRAL [Concomitant]
     Route: 048
  4. NORVASC [Concomitant]
     Route: 048
     Dates: start: 20040202
  5. LIPITOR [Concomitant]
     Route: 048
     Dates: start: 20040202

REACTIONS (2)
  - PROTEIN URINE PRESENT [None]
  - PROTEINURIA [None]
